FAERS Safety Report 7043782-5 (Version None)
Quarter: 2010Q4

REPORT INFORMATION
  Report Type: 
  Country: None (occurrence: None)
  Receive Date: 20101008
  Receipt Date: 20101008
  Transmission Date: 20110411
  Serious: Yes (Disabling)
  Sender: FDA-Public Use
  Company Number: None

PATIENT
  Sex: Female
  Weight: 72.5755 kg

DRUGS (9)
  1. AVAPRO [Suspect]
     Indication: HYPOTENSION
     Dosage: 150 MG 1 A DAY
  2. HYZAAR [Suspect]
     Dosage: 50 12.5
  3. COZAAR [Suspect]
     Dosage: 50 + 25 MG
  4. HYDROCHLOROTHIAZIDE [Suspect]
     Dosage: 25 MG 1 A DAY
  5. FUROSEMIDE [Suspect]
     Dosage: 20 MG 1 A DAY
  6. DIOVAN [Suspect]
     Dosage: 1 A DAY
  7. CHLORTHALIDONE [Suspect]
     Indication: VISION BLURRED
     Dosage: 50 MG 1 A DAY
  8. ALTACE [Suspect]
     Dosage: 5 MG 1 A DAY
  9. TRIMEL DS [Suspect]
     Dosage: 800 MG/160 MG.

REACTIONS (1)
  - VISION BLURRED [None]
